FAERS Safety Report 7948236-7 (Version None)
Quarter: 2011Q4

REPORT INFORMATION
  Report Type: 
  Country: None (occurrence: None)
  Receive Date: 20111125
  Receipt Date: 20111118
  Transmission Date: 20120403
  Serious: Yes (Congenital Anomaly)
  Sender: FDA-Public Use
  Company Number: FR-GDP-11412410

PATIENT

DRUGS (1)
  1. EPIDUO [Suspect]
     Indication: PRODUCT USED FOR UNKNOWN INDICATION
     Dosage: (TRANSPLACENTAL)
     Route: 064

REACTIONS (2)
  - MATERNAL DRUGS AFFECTING FOETUS [None]
  - FALLOT'S TETRALOGY [None]
